FAERS Safety Report 14786116 (Version 1)
Quarter: 2018Q2

REPORT INFORMATION
  Report Type: Spontaneous
  Country: US (occurrence: US)
  Receive Date: 20180420
  Receipt Date: 20180420
  Transmission Date: 20180711
  Serious: Yes (Other)
  Sender: FDA-Public Use
  Company Number: US-PRINSTON PHARMACEUTICAL INC.-2018PRN00182

PATIENT
  Sex: Male
  Weight: 74.83 kg

DRUGS (6)
  1. LISINOPRIL. [Suspect]
     Active Substance: LISINOPRIL
     Indication: HYPERTENSION
  2. METOPROLOL. [Concomitant]
     Active Substance: METOPROLOL
  3. KEPPRA [Concomitant]
     Active Substance: LEVETIRACETAM
     Dosage: 1000 MG, 2X/DAY
  4. ASPIRIN. [Concomitant]
     Active Substance: ASPIRIN
  5. AMLODIPINE [Concomitant]
     Active Substance: AMLODIPINE BESYLATE
  6. LISINOPRIL. [Suspect]
     Active Substance: LISINOPRIL
     Indication: DIZZINESS
     Dosage: 20 MG, 1X/DAY
     Route: 048
     Dates: start: 2004

REACTIONS (6)
  - Alveolar osteitis [Not Recovered/Not Resolved]
  - Gingival hypertrophy [Not Recovered/Not Resolved]
  - Hyperplasia [Not Recovered/Not Resolved]
  - Seizure [Unknown]
  - Cholecystitis infective [Recovered/Resolved]
  - Bone loss [Not Recovered/Not Resolved]

NARRATIVE: CASE EVENT DATE: 2013
